FAERS Safety Report 21200084 (Version 5)
Quarter: 2022Q4

REPORT INFORMATION
  Report Type: Spontaneous
  Country: CA (occurrence: CA)
  Receive Date: 20220811
  Receipt Date: 20221229
  Transmission Date: 20230113
  Serious: Yes (Hospitalization, Other)
  Sender: FDA-Public Use
  Company Number: CA-PFIZER INC-2021238839

PATIENT
  Age: 73 Year
  Sex: Female

DRUGS (6)
  1. XELJANZ [Suspect]
     Active Substance: TOFACITINIB CITRATE
     Indication: Psoriatic arthropathy
     Dosage: 5 MG, 2X/DAY
     Route: 048
     Dates: start: 20201217, end: 202102
  2. XELJANZ [Suspect]
     Active Substance: TOFACITINIB CITRATE
     Dosage: 5 MG, 2X/DAY
     Route: 048
     Dates: start: 20210302, end: 20210308
  3. XELJANZ [Suspect]
     Active Substance: TOFACITINIB CITRATE
     Dosage: 5 MG, 2X/DAY
     Route: 048
     Dates: start: 20210326, end: 2021
  4. XELJANZ [Suspect]
     Active Substance: TOFACITINIB CITRATE
     Dosage: 5 MG, 2X/DAY
     Route: 048
     Dates: start: 2021, end: 20220805
  5. LEFLUNOMIDE [Concomitant]
     Active Substance: LEFLUNOMIDE
     Dosage: 10 MG, 1X/DAY
     Route: 065
     Dates: start: 202107
  6. PREDNISONE [Concomitant]
     Active Substance: PREDNISONE
     Dosage: 7 MG, 1X/DAY
     Route: 048

REACTIONS (10)
  - Intestinal obstruction [Unknown]
  - Urinary tract infection [Not Recovered/Not Resolved]
  - Kidney infection [Not Recovered/Not Resolved]
  - Immunodeficiency [Not Recovered/Not Resolved]
  - Pneumonia [Unknown]
  - Vaginal prolapse [Unknown]
  - Bladder prolapse [Not Recovered/Not Resolved]
  - Flank pain [Not Recovered/Not Resolved]
  - Infection [Not Recovered/Not Resolved]
  - Polyuria [Not Recovered/Not Resolved]

NARRATIVE: CASE EVENT DATE: 20210214
